FAERS Safety Report 5382969-4 (Version None)
Quarter: 2007Q3

REPORT INFORMATION
  Report Type: 
  Country: None (occurrence: None)
  Receive Date: 20070710
  Receipt Date: 20070703
  Transmission Date: 20080115
  Serious: Yes (Other)
  Sender: FDA-Public Use
  Company Number: A0662312A

PATIENT
  Age: 69 Year
  Sex: Male

DRUGS (12)
  1. ZOFRAN [Suspect]
     Indication: DRUG USE FOR UNKNOWN INDICATION
     Dosage: 8MG UNKNOWN
     Route: 042
  2. ATROPINE [Concomitant]
     Route: 058
  3. CAMPTOSAR [Concomitant]
     Route: 042
  4. COLACE [Concomitant]
     Route: 048
  5. DECADRON [Concomitant]
     Route: 042
  6. FLUOROURACIL [Concomitant]
     Route: 042
  7. FOLINIC ACID [Concomitant]
     Route: 042
  8. HYDROMORPH CONTIN [Concomitant]
     Route: 048
  9. NEURONTIN [Concomitant]
     Route: 048
  10. PANTOPRAZOLE SODIUM [Concomitant]
     Route: 048
  11. SENOKOT [Concomitant]
     Route: 048
  12. PROCHLORPERAZINE [Concomitant]
     Route: 048

REACTIONS (2)
  - JOINT STIFFNESS [None]
  - SPEECH DISORDER [None]
